FAERS Safety Report 8222448-X (Version None)
Quarter: 2012Q1

REPORT INFORMATION
  Report Type: 
  Country: None (occurrence: None)
  Receive Date: 20120320
  Receipt Date: 20120316
  Transmission Date: 20120608
  Serious: Yes (Death)
  Sender: FDA-Public Use
  Company Number: PHEH2012US001968

PATIENT
  Sex: Female

DRUGS (1)
  1. NEORAL [Suspect]
     Indication: LUNG TRANSPLANT
     Dosage: 100 MG/ML, BID
     Route: 048
     Dates: start: 20050101, end: 20110101

REACTIONS (1)
  - DEATH [None]
